FAERS Safety Report 5202092-9 (Version None)
Quarter: 2007Q1

REPORT INFORMATION
  Report Type: 
  Country: None (occurrence: None)
  Receive Date: 20070109
  Receipt Date: 20061229
  Transmission Date: 20070707
  Serious: Yes (Other)
  Sender: FDA-Public Use
  Company Number: GBWYE982429DEC06

PATIENT
  Sex: Male

DRUGS (6)
  1. ENBREL [Suspect]
     Indication: DRUG USE FOR UNKNOWN INDICATION
     Route: 058
     Dates: start: 20061201
  2. RISEDRONATE SODIUM [Concomitant]
     Dosage: UNKNOWN
  3. PREDNISOLONE [Concomitant]
     Dosage: 10MG, FREQUENCY UNKNOWN
  4. BISOPROLOL FUMARATE [Concomitant]
     Dosage: UNKNOWN
  5. METHOTREXATE [Concomitant]
     Dosage: UNKNOWN
  6. ACETAMINOPHEN [Concomitant]
     Dosage: UNKNOWN

REACTIONS (3)
  - DYSPNOEA [None]
  - FEELING COLD [None]
  - HEADACHE [None]
